FAERS Safety Report 11431182 (Version 7)
Quarter: 2016Q2

REPORT INFORMATION
  Report Type: Report from Study
  Country: US (occurrence: US)
  Receive Date: 20150828
  Receipt Date: 20160524
  Transmission Date: 20160815
  Serious: Yes (Hospitalization, Other)
  Sender: FDA-Public Use
  Company Number: PHHY2015US044126

PATIENT
  Age: 67 Year
  Sex: Female

DRUGS (5)
  1. BACLOFEN. [Concomitant]
     Active Substance: BACLOFEN
     Indication: MUSCLE SPASTICITY
     Dosage: 10 MG, UNK
     Route: 065
     Dates: start: 2007
  2. SERTRALINE [Concomitant]
     Active Substance: SERTRALINE HYDROCHLORIDE
     Indication: DEPRESSION
     Dosage: 50 MG, UNK
     Route: 065
     Dates: start: 2009
  3. GILENYA [Suspect]
     Active Substance: FINGOLIMOD HYDROCHLORIDE
     Indication: MULTIPLE SCLEROSIS
     Dosage: 0.5 MG, QD
     Route: 048
     Dates: start: 20141203, end: 20150708
  4. AMPYRA [Concomitant]
     Active Substance: DALFAMPRIDINE
     Indication: MULTIPLE SCLEROSIS
     Dosage: 10 MG, BID
     Route: 065
     Dates: start: 2009
  5. OXYBUTYNIN [Concomitant]
     Active Substance: OXYBUTYNIN
     Indication: URINARY INCONTINENCE
     Dosage: 5 MG, TID
     Route: 065
     Dates: start: 20090720

REACTIONS (14)
  - Dizziness [Recovered/Resolved]
  - Low density lipoprotein increased [Unknown]
  - Epistaxis [Recovered/Resolved]
  - Lymphopenia [Recovered/Resolved]
  - Laceration [Recovered/Resolved]
  - White blood cell count decreased [Recovered/Resolved]
  - Fall [Recovered/Resolved]
  - Visual acuity reduced [Unknown]
  - Vitreous adhesions [Unknown]
  - Vertigo [Recovered/Resolved]
  - White blood cell count increased [Unknown]
  - Haematoma [Recovered/Resolved]
  - Melanocytic naevus [Unknown]
  - Seborrhoeic keratosis [Unknown]

NARRATIVE: CASE EVENT DATE: 20141204
